FAERS Safety Report 6277988-X (Version None)
Quarter: 2009Q3

REPORT INFORMATION
  Report Type: 
  Country: None (occurrence: None)
  Receive Date: 20090722
  Receipt Date: 20090714
  Transmission Date: 20100115
  Serious: Yes (Hospitalization)
  Sender: FDA-Public Use
  Company Number: PL-JNJFOC-20090706726

PATIENT
  Sex: Female

DRUGS (9)
  1. HALOPERIDOL [Suspect]
     Indication: NEUROSIS
     Route: 048
  2. ATARAX [Suspect]
     Indication: NEUROSIS
     Route: 048
  3. LERIVON [Suspect]
     Indication: NEUROSIS
     Route: 048
  4. ESTAZOLAM [Suspect]
     Indication: NEUROSIS
     Route: 048
  5. BELLADONNA EXTRACT [Concomitant]
     Route: 065
  6. TRITACE [Concomitant]
     Route: 065
  7. AMLOZEK [Concomitant]
     Route: 065
  8. ASPIRIN [Concomitant]
     Route: 065
  9. MEMOTROPIL [Concomitant]
     Route: 065

REACTIONS (4)
  - BALANCE DISORDER [None]
  - CONFUSIONAL STATE [None]
  - DIZZINESS [None]
  - SEDATION [None]
